FAERS Safety Report 9345356 (Version 2)
Quarter: 2013Q3

REPORT INFORMATION
  Report Type: Spontaneous
  Country: US (occurrence: US)
  Receive Date: 20130613
  Receipt Date: 20130701
  Transmission Date: 20140515
  Serious: Yes (Other)
  Sender: FDA-Public Use
  Company Number: US-AMGEN-USASP2013041376

PATIENT
  Age: 76 Year
  Sex: Female
  Weight: 64.4 kg

DRUGS (5)
  1. PROLIA [Suspect]
     Indication: OSTEOPOROSIS
     Dosage: 60 MG, Q6MO
     Route: 058
     Dates: start: 20120521
  2. OSCAL                              /00514701/ [Concomitant]
     Dosage: 500 UNK, UNK
  3. VITAMIN D3 [Concomitant]
     Dosage: 2000 MG, UNK
  4. ZINC [Concomitant]
  5. VITAMIN B12                        /00056201/ [Concomitant]

REACTIONS (14)
  - Activities of daily living impaired [Unknown]
  - Abasia [Unknown]
  - Exercise tolerance decreased [Unknown]
  - Discomfort [Unknown]
  - Pain [Unknown]
  - Neuropathy peripheral [Unknown]
  - Disturbance in attention [Unknown]
  - Asthenia [Unknown]
  - Fatigue [Not Recovered/Not Resolved]
  - Lymphadenopathy [Unknown]
  - Nausea [Unknown]
  - Myalgia [Not Recovered/Not Resolved]
  - Back pain [Not Recovered/Not Resolved]
  - Muscular weakness [Unknown]
